FAERS Safety Report 14200726 (Version 1)
Quarter: 2017Q4

REPORT INFORMATION
  Report Type: Spontaneous
  Country: FR (occurrence: FR)
  Receive Date: 20171117
  Receipt Date: 20171117
  Transmission Date: 20180321
  Serious: Yes (Life-Threatening)
  Sender: FDA-Public Use
  Company Number: FR-009507513-1711FRA006173

PATIENT
  Age: 56 Year
  Sex: Female

DRUGS (5)
  1. ONDANSETRON [Suspect]
     Active Substance: ONDANSETRON
     Indication: PROPHYLAXIS
     Dosage: STRENGHT: 2 MG/ML; 8 MG, ONCE
     Route: 042
     Dates: start: 20171018, end: 20171018
  2. LEVOLEUCOVORIN CALCIUM. [Suspect]
     Active Substance: LEVOLEUCOVORIN CALCIUM
     Indication: RECTAL CANCER
     Dosage: 676 MG, ONCE
     Route: 042
     Dates: start: 20171018, end: 20171018
  3. OXALIPLATIN. [Suspect]
     Active Substance: OXALIPLATIN
     Indication: RECTAL CANCER
     Dosage: STRENGTH: 5 MG/ML; 86 MG, ONCE
     Route: 042
     Dates: start: 20171018, end: 20171018
  4. EMEND [Suspect]
     Active Substance: APREPITANT
     Indication: PROPHYLAXIS
     Dosage: 1 DF, ONCE
     Route: 048
     Dates: start: 20171018, end: 20171018
  5. METHYLPREDNISOLONE. [Suspect]
     Active Substance: METHYLPREDNISOLONE
     Indication: PROPHYLAXIS
     Dosage: 60 MG, ONCE
     Route: 042
     Dates: start: 20171018, end: 20171018

REACTIONS (1)
  - Anaphylactic shock [Recovered/Resolved]

NARRATIVE: CASE EVENT DATE: 20171018
